FAERS Safety Report 6528749-5 (Version None)
Quarter: 2009Q4

REPORT INFORMATION
  Report Type: 
  Country: None (occurrence: None)
  Receive Date: 20091222
  Receipt Date: 20091218
  Transmission Date: 20100525
  Serious: Yes (Death, Life-Threatening, Hospitalization)
  Sender: FDA-Public Use
  Company Number: ADR53982009

PATIENT
  Age: 25 Year
  Sex: Male

DRUGS (13)
  1. CIPROFLOXACIN [Suspect]
     Indication: PNEUMOCYSTIS JIROVECI PNEUMONIA
  2. CLARITHROMYCIN [Concomitant]
  3. CO-TRIMOXAZOLE [Concomitant]
  4. LAMIVUDINE [Concomitant]
  5. TENOFOVIR [Concomitant]
  6. VIRAMUNE [Concomitant]
  7. IBUPROFEN [Concomitant]
  8. BACTRIM [Concomitant]
  9. COMBIVIR [Concomitant]
  10. EFAVIRENZ [Concomitant]
  11. LOPERAMIDE [Concomitant]
  12. SEPTRIN [Concomitant]
  13. ZIDOVUDINE [Concomitant]

REACTIONS (16)
  - AGITATION [None]
  - BIOPSY LIVER ABNORMAL [None]
  - CHOLANGITIS [None]
  - CONFUSIONAL STATE [None]
  - COUGH [None]
  - DIARRHOEA [None]
  - HAEMOGLOBIN DECREASED [None]
  - HEPATIC FAILURE [None]
  - HEPATOCELLULAR INJURY [None]
  - HEPATOTOXICITY [None]
  - PAIN IN EXTREMITY [None]
  - PYREXIA [None]
  - SCLERAL DISCOLOURATION [None]
  - SEPSIS [None]
  - VANISHING BILE DUCT SYNDROME [None]
  - VOMITING [None]
